FAERS Safety Report 9257818 (Version 1)
Quarter: 2013Q2

REPORT INFORMATION
  Report Type: Spontaneous
  Country: JP (occurrence: JP)
  Receive Date: 20130426
  Receipt Date: 20130426
  Transmission Date: 20140414
  Serious: Yes (Other)
  Sender: FDA-Public Use
  Company Number: JP-ASTELLAS-2013JP005436

PATIENT
  Age: 81 Year
  Sex: Female

DRUGS (10)
  1. VESICARE [Suspect]
     Indication: MICTURITION URGENCY
     Dosage: UNK
     Route: 048
     Dates: start: 201303
  2. DIGOXIN [Concomitant]
     Route: 048
  3. LASIX                              /00032601/ [Concomitant]
     Route: 065
  4. ALDACTONE A [Concomitant]
     Route: 048
  5. AMARYL [Concomitant]
     Indication: DIABETES MELLITUS
     Dosage: 2 MG, UNKNOWN/D
     Route: 048
  6. AMARYL [Concomitant]
     Dosage: 3 MG, UNKNOWN/D
     Route: 048
  7. EQUA [Concomitant]
     Dosage: 50 MG, BID
     Route: 048
  8. HOKUNALIN                          /00654901/ [Concomitant]
     Indication: ASTHMA
     Route: 062
  9. SHAKUYAKUKANZOTO [Concomitant]
     Indication: ASTHMA
     Route: 048
  10. CALONAL [Concomitant]
     Indication: ASTHMA
     Route: 065

REACTIONS (3)
  - Intentional drug misuse [Unknown]
  - Blood glucose increased [Not Recovered/Not Resolved]
  - Glycosylated haemoglobin increased [Not Recovered/Not Resolved]
